FAERS Safety Report 6648257-0 (Version None)
Quarter: 2010Q1

REPORT INFORMATION
  Report Type: 
  Country: None (occurrence: None)
  Receive Date: 20100324
  Receipt Date: 20100319
  Transmission Date: 20100710
  Serious: Yes (Death, Hospitalization)
  Sender: FDA-Public Use
  Company Number: TR-CELGENEUS-161-C5013-10031851

PATIENT
  Sex: Male
  Weight: 82 kg

DRUGS (6)
  1. CC-5013 [Suspect]
     Indication: MULTIPLE MYELOMA
     Route: 048
     Dates: start: 20090716, end: 20100119
  2. DEKORT [Suspect]
     Indication: MULTIPLE MYELOMA
     Route: 048
     Dates: start: 20090716, end: 20100119
  3. CYCLOPHOSPHAMIDE [Concomitant]
     Indication: DRUG USE FOR UNKNOWN INDICATION
     Route: 065
     Dates: start: 20100307, end: 20100310
  4. CISPLATIN [Concomitant]
     Indication: DRUG USE FOR UNKNOWN INDICATION
     Route: 065
     Dates: start: 20100307, end: 20100310
  5. ETOPOSIDE [Concomitant]
     Indication: DRUG USE FOR UNKNOWN INDICATION
     Route: 065
     Dates: start: 20100307, end: 20100310
  6. DEXAMETHASONE [Concomitant]
     Indication: DRUG USE FOR UNKNOWN INDICATION
     Route: 065
     Dates: start: 20100307, end: 20100310

REACTIONS (4)
  - FEBRILE NEUTROPENIA [None]
  - MULTIPLE MYELOMA [None]
  - RENAL FAILURE [None]
  - RESPIRATORY FAILURE [None]
